FAERS Safety Report 11174471 (Version 1)
Quarter: 2015Q2

REPORT INFORMATION
  Report Type: Report from Study
  Country: DE (occurrence: DE)
  Receive Date: 20150609
  Receipt Date: 20150609
  Transmission Date: 20150821
  Serious: Yes (Hospitalization)
  Sender: FDA-Public Use
  Company Number: DE-ROCHE-1588061

PATIENT
  Age: 59 Year
  Sex: Female
  Weight: 98 kg

DRUGS (8)
  1. PERTUZUMAB [Suspect]
     Active Substance: PERTUZUMAB
     Dosage: MAINTANACE DOSE
     Route: 042
     Dates: start: 20150508
  2. PACLITAXEL. [Suspect]
     Active Substance: PACLITAXEL
     Indication: HER-2 POSITIVE BREAST CANCER
     Dosage: UNIT 225 MG. LAST DOSE PRIOR TO SAE 21/APR/2015.
     Route: 042
     Dates: start: 20150407
  3. TRASTUZUMAB [Suspect]
     Active Substance: TRASTUZUMAB
     Indication: HER-2 POSITIVE BREAST CANCER
     Dosage: LOADING DOSE  LAST DOSE PRIOR TO SAE IS 08/APR/2015.
     Route: 042
     Dates: start: 20150408, end: 20150408
  4. LOPERAMID [Concomitant]
     Active Substance: LOPERAMIDE
     Route: 065
     Dates: start: 20150407
  5. MILGAMMA (GERMANY) [Concomitant]
     Route: 065
     Dates: start: 20150217
  6. TRASTUZUMAB [Suspect]
     Active Substance: TRASTUZUMAB
     Dosage: MAINTANACE DOSE
     Route: 042
     Dates: start: 20150508
  7. PERTUZUMAB [Suspect]
     Active Substance: PERTUZUMAB
     Indication: HER-2 POSITIVE BREAST CANCER
     Dosage: LOADING DOSE. LAST DOSE PRIOR TO SAE IS 08/APR/2015.
     Route: 042
     Dates: start: 20150408, end: 20150408
  8. EPIRUBICIN [Suspect]
     Active Substance: EPIRUBICIN
     Indication: HER-2 POSITIVE BREAST CANCER
     Dosage: LAST DOSE PRIOR TO SAE 20/MAR/2015.
     Route: 042
     Dates: start: 20150217

REACTIONS (1)
  - Hypokalaemia [Recovered/Resolved]

NARRATIVE: CASE EVENT DATE: 20150421
